FAERS Safety Report 11511965 (Version 1)
Quarter: 2015Q3

REPORT INFORMATION
  Report Type: Spontaneous
  Country: US (occurrence: US)
  Receive Date: 20150916
  Receipt Date: 20150916
  Transmission Date: 20151125
  Serious: No
  Sender: FDA-Public Use
  Company Number: US-009507513-1509USA005455

PATIENT
  Age: 32 Year
  Sex: Female
  Weight: 74.83 kg

DRUGS (2)
  1. ALBUTEROL. [Concomitant]
     Active Substance: ALBUTEROL
  2. NEXPLANON [Suspect]
     Active Substance: ETONOGESTREL
     Indication: CONTRACEPTION
     Dosage: EVERY 3 YEARS
     Route: 059
     Dates: start: 20150506

REACTIONS (2)
  - Metrorrhagia [Unknown]
  - Medical device complication [Unknown]

NARRATIVE: CASE EVENT DATE: 20150506
